FAERS Safety Report 6196012-0 (Version None)
Quarter: 2009Q2

REPORT INFORMATION
  Report Type: 
  Country: None (occurrence: None)
  Receive Date: 20090520
  Receipt Date: 20040130
  Transmission Date: 20091009
  Serious: Yes (Life-Threatening)
  Sender: FDA-Public Use
  Company Number: NL-ROCHE-597603

PATIENT
  Sex: Male

DRUGS (4)
  1. CAPECITABINE [Suspect]
     Indication: COLON CANCER
     Dosage: GIVEN BID ON DAY 1 TO DAY 14 PER THREE WEEKS.(AS PER PROTOCOL)
     Route: 048
     Dates: start: 20031128, end: 20031214
  2. CAPECITABINE [Suspect]
     Dosage: GIVEN BID ON DAY 1 TO DAY 14 PER THREE WEEKS.(AS PER PROTOCOL)
     Route: 048
     Dates: start: 20031214, end: 20040107
  3. CAPECITABINE [Suspect]
     Dosage: GIVEN BID ON DAY 1 TO DAY 14 PER THREE WEEKS.(AS PER PROTOCOL)
     Route: 048
     Dates: start: 20040109, end: 20040119
  4. OMIC [Concomitant]
     Dosage: DOSE: 1.04 MG

REACTIONS (1)
  - INTERSTITIAL LUNG DISEASE [None]
